FAERS Safety Report 24097194 (Version 1)
Quarter: 2024Q3

REPORT INFORMATION
  Report Type: Spontaneous
  Country: US (occurrence: US)
  Receive Date: 20240716
  Receipt Date: 20240716
  Transmission Date: 20241017
  Serious: Yes (Other)
  Sender: DR REDDYS
  Company Number: US-E2BLSMVVAL-SPO/USA/24/0010231

PATIENT

DRUGS (1)
  1. CLONIDINE TRANSDERMAL SYSTEM [Suspect]
     Active Substance: CLONIDINE
     Indication: Product used for unknown indication
     Route: 062

REACTIONS (3)
  - Blood pressure increased [Unknown]
  - Product quality issue [Unknown]
  - Product substitution [Unknown]
